FAERS Safety Report 11383025 (Version 4)
Quarter: 2015Q4

REPORT INFORMATION
  Report Type: Spontaneous
  Country: US (occurrence: US)
  Receive Date: 20150814
  Receipt Date: 20151005
  Transmission Date: 20160304
  Serious: No
  Sender: FDA-Public Use
  Company Number: US-AMGEN-USASL2015080135

PATIENT
  Age: 46 Year
  Sex: Female

DRUGS (2)
  1. ENBREL [Suspect]
     Active Substance: ETANERCEPT
     Indication: PSORIATIC ARTHROPATHY
     Dosage: 50 MG, 2 TIMES/WK
     Route: 065
     Dates: start: 20150801
  2. ENBREL [Suspect]
     Active Substance: ETANERCEPT
     Indication: PSORIASIS

REACTIONS (20)
  - Pain in extremity [Unknown]
  - Skin discolouration [Unknown]
  - Chest pain [Unknown]
  - Injection site bruising [Unknown]
  - Back pain [Unknown]
  - Swelling [Unknown]
  - Injection site swelling [Unknown]
  - Contusion [Unknown]
  - Injection site urticaria [Unknown]
  - Injection site warmth [Unknown]
  - Injection site reaction [Unknown]
  - Tenderness [Unknown]
  - Paraesthesia [Recovered/Resolved]
  - Injection site erythema [Unknown]
  - Drug effect incomplete [Unknown]
  - Injection site induration [Unknown]
  - Sensory disturbance [Unknown]
  - Arthralgia [Unknown]
  - Injection site haemorrhage [Unknown]
  - Injection site macule [Unknown]

NARRATIVE: CASE EVENT DATE: 201508
